FAERS Safety Report 23390351 (Version 1)
Quarter: 2024Q1

REPORT INFORMATION
  Report Type: Report from Study
  Country: US (occurrence: US)
  Receive Date: 20240111
  Receipt Date: 20240111
  Transmission Date: 20240409
  Serious: Yes (Other)
  Sender: FDA-Public Use
  Company Number: US-SUN PHARMACEUTICAL INDUSTRIES LTD-2023R1-425994

PATIENT

DRUGS (1)
  1. ISOTRETINOIN [Suspect]
     Active Substance: ISOTRETINOIN
     Indication: Pyoderma
     Dosage: 30 MILLIGRAM
     Route: 065

REACTIONS (4)
  - Deafness [Unknown]
  - Tinnitus [Unknown]
  - Headache [Unknown]
  - Therapy cessation [Unknown]
